FAERS Safety Report 25378323 (Version 1)
Quarter: 2025Q2

REPORT INFORMATION
  Report Type: Report from Study
  Country: CA (occurrence: CA)
  Receive Date: 20250530
  Receipt Date: 20250530
  Transmission Date: 20250717
  Serious: Yes (Other)
  Sender: ABBVIE
  Company Number: CA-ABBVIE-6305872

PATIENT
  Sex: Male

DRUGS (1)
  1. LUPRON [Suspect]
     Active Substance: LEUPROLIDE ACETATE
     Indication: Prostate cancer
     Route: 065
     Dates: start: 20240913

REACTIONS (5)
  - Hip surgery [Unknown]
  - Muscle disorder [Unknown]
  - Pain in extremity [Unknown]
  - Movement disorder [Unknown]
  - Post procedural complication [Unknown]
